FAERS Safety Report 24992020 (Version 7)
Quarter: 2025Q4

REPORT INFORMATION
  Report Type: Report from Study
  Country: JP (occurrence: JP)
  Receive Date: 20250220
  Receipt Date: 20251120
  Transmission Date: 20260117
  Serious: Yes (Death, Other)
  Sender: SHIONOGI
  Company Number: JP-shionogi-202500001984

PATIENT
  Age: 84 Year
  Sex: Female
  Weight: 43.5 kg

DRUGS (7)
  1. CEFIDEROCOL [Suspect]
     Active Substance: CEFIDEROCOL
     Indication: Pneumonia
     Route: 041
     Dates: start: 20241202, end: 20241206
  2. PREDONINE [Suspect]
     Active Substance: PREDNISOLONE
     Indication: Product used for unknown indication
     Route: 065
     Dates: start: 20241126, end: 20241211
  3. PREDONINE [Suspect]
     Active Substance: PREDNISOLONE
     Indication: Interstitial lung disease
  4. MINOCYCLINE HYDROCHLORIDE [Concomitant]
     Active Substance: MINOCYCLINE HYDROCHLORIDE
     Indication: Pneumonia
     Route: 042
     Dates: start: 20241121, end: 20241201
  5. NEOPHAGEN [CYSTEINE;GLYCINE;GLYCYRRHIZIC ACID] [Concomitant]
     Indication: Hepatic function abnormal
     Route: 065
     Dates: start: 20241204, end: 20241211
  6. MICAFUNGIN SODIUM [Concomitant]
     Active Substance: MICAFUNGIN SODIUM
     Indication: Product used for unknown indication
     Route: 065
     Dates: start: 20241205, end: 20241209
  7. NAFAMOSTAT MESYLATE [Concomitant]
     Active Substance: NAFAMOSTAT MESYLATE
     Indication: Disseminated intravascular coagulation
     Route: 065
     Dates: start: 20241204, end: 20241209

REACTIONS (3)
  - Disseminated intravascular coagulation [Fatal]
  - Interstitial lung disease [Fatal]
  - Hepatic function abnormal [Recovering/Resolving]

NARRATIVE: CASE EVENT DATE: 20241204
